FAERS Safety Report 5927009-0 (Version None)
Quarter: 2008Q4

REPORT INFORMATION
  Report Type: 
  Country: None (occurrence: None)
  Receive Date: 20081021
  Receipt Date: 20081021
  Transmission Date: 20090506
  Serious: No
  Sender: FDA-Public Use
  Company Number: None

PATIENT
  Age: 64 Year
  Sex: Female

DRUGS (1)
  1. CIPRO [Suspect]
     Indication: ANTIBIOTIC PROPHYLAXIS
     Dosage: 400MG ONCE IV   ONE DOSE ONLY
     Route: 042
     Dates: start: 20081017, end: 20081017

REACTIONS (2)
  - INJECTION SITE ERYTHEMA [None]
  - INJECTION SITE PRURITUS [None]
